FAERS Safety Report 6633662-9 (Version None)
Quarter: 2010Q1

REPORT INFORMATION
  Report Type: 
  Country: None (occurrence: None)
  Receive Date: 20100312
  Receipt Date: 20100302
  Transmission Date: 20100710
  Serious: Yes (Life-Threatening, Hospitalization)
  Sender: FDA-Public Use
  Company Number: DE-ABBOTT-10P-062-0629936-00

PATIENT
  Age: 47 Year
  Sex: Female

DRUGS (21)
  1. ERGENYL CHRONO TABLETS [Suspect]
     Indication: DRUG USE FOR UNKNOWN INDICATION
     Route: 048
     Dates: start: 20090913, end: 20090917
  2. CIATYL-Z [Interacting]
     Indication: DRUG USE FOR UNKNOWN INDICATION
     Route: 048
     Dates: start: 20090911, end: 20090912
  3. CIATYL-Z [Interacting]
     Route: 048
     Dates: start: 20090913, end: 20090913
  4. CIATYL-Z [Interacting]
     Route: 048
     Dates: start: 20090914, end: 20090914
  5. CIATYL-Z [Interacting]
     Route: 048
     Dates: start: 20090915, end: 20090915
  6. CIATYL-Z [Interacting]
     Route: 048
     Dates: start: 20090916, end: 20090917
  7. DIPIPERON [Interacting]
     Indication: DRUG USE FOR UNKNOWN INDICATION
     Route: 048
     Dates: start: 20090910, end: 20090914
  8. DIPIPERON [Interacting]
     Route: 048
     Dates: start: 20090915, end: 20090915
  9. DIPIPERON [Interacting]
     Route: 048
     Dates: start: 20090916, end: 20090917
  10. HALDOL [Interacting]
     Indication: DRUG USE FOR UNKNOWN INDICATION
     Route: 048
     Dates: start: 20090909, end: 20090913
  11. HALDOL [Interacting]
     Route: 048
     Dates: start: 20090914, end: 20090916
  12. HALDOL [Interacting]
     Route: 042
     Dates: start: 20090917, end: 20090917
  13. LORAZEPAM [Interacting]
     Indication: DRUG USE FOR UNKNOWN INDICATION
     Route: 048
     Dates: start: 20090916, end: 20090916
  14. LORAZEPAM [Interacting]
     Route: 048
     Dates: start: 20090917, end: 20090917
  15. DIAZEPAM [Interacting]
     Indication: DRUG USE FOR UNKNOWN INDICATION
     Route: 048
     Dates: start: 20090908, end: 20090908
  16. DIAZEPAM [Interacting]
     Route: 048
     Dates: start: 20090909, end: 20090909
  17. DIAZEPAM [Interacting]
     Route: 048
     Dates: start: 20090910, end: 20090915
  18. ATOSIL [Interacting]
     Indication: DRUG USE FOR UNKNOWN INDICATION
     Route: 048
     Dates: start: 20090916, end: 20090916
  19. FLUNINOC [Interacting]
     Indication: DRUG USE FOR UNKNOWN INDICATION
     Route: 048
     Dates: start: 20090913, end: 20090916
  20. AKINETON [Concomitant]
     Indication: DRUG USE FOR UNKNOWN INDICATION
     Dates: start: 20090909, end: 20090918
  21. ABILIFY [Concomitant]
     Indication: DRUG USE FOR UNKNOWN INDICATION
     Dates: end: 20090914

REACTIONS (7)
  - DRUG INTERACTION [None]
  - DYSARTHRIA [None]
  - FALL [None]
  - GAIT DISTURBANCE [None]
  - OXYGEN SATURATION DECREASED [None]
  - RESPIRATORY FAILURE [None]
  - SLEEP APNOEA SYNDROME [None]
